FAERS Safety Report 24651039 (Version 1)
Quarter: 2024Q4

REPORT INFORMATION
  Report Type: Report from Study
  Country: US (occurrence: US)
  Receive Date: 20241122
  Receipt Date: 20241122
  Transmission Date: 20250114
  Serious: Yes (Hospitalization)
  Sender: ABBVIE
  Company Number: US-ABBVIE-6009768

PATIENT
  Age: 55 Year
  Sex: Female

DRUGS (1)
  1. SKYRIZI [Suspect]
     Active Substance: RISANKIZUMAB-RZAA
     Indication: Psoriasis
     Route: 058
     Dates: start: 20240927

REACTIONS (6)
  - Bacterial infection [Recovering/Resolving]
  - Arthralgia [Unknown]
  - Influenza like illness [Unknown]
  - Pyrexia [Unknown]
  - Rash erythematous [Unknown]
  - Flushing [Unknown]

NARRATIVE: CASE EVENT DATE: 20240101
